FAERS Safety Report 8963089 (Version 1)
Quarter: 2012Q4

REPORT INFORMATION
  Report Type: 
  Country: US (occurrence: US)
  Receive Date: 20121213
  Receipt Date: 20121213
  Transmission Date: 20130627
  Serious: No
  Sender: FDA-Public Use
  Company Number: US-PFIZER INC-2012311205

PATIENT
  Age: 34 Year
  Sex: Female

DRUGS (4)
  1. ENBREL [Suspect]
     Indication: PLAQUE PSORIASIS
     Dosage: 50 mg, 2 times/wk
     Dates: start: 2005
  2. METHOTREXATE SODIUM [Suspect]
     Dosage: 10 mg, qwk
     Dates: start: 200911
  3. HUMIRA [Suspect]
     Dosage: UNK
     Dates: start: 200907
  4. USTEKINUMAB [Suspect]
     Dosage: 90 mg, UNK
     Dates: start: 201107

REACTIONS (8)
  - Arthralgia [Unknown]
  - Red blood cell sedimentation rate increased [Unknown]
  - Joint stiffness [Unknown]
  - Psoriasis [Unknown]
  - Antinuclear antibody positive [Unknown]
  - Tinea pedis [Unknown]
  - Nail dystrophy [Unknown]
  - Osteoarthritis [Unknown]
